FAERS Safety Report 5004658-8 (Version None)
Quarter: 2006Q2

REPORT INFORMATION
  Report Type: 
  Country: None (occurrence: None)
  Receive Date: 20060517
  Receipt Date: 20060509
  Transmission Date: 20061013
  Serious: Yes (Hospitalization, Other)
  Sender: FDA-Public Use
  Company Number: US-NOVOPROD-253148

PATIENT
  Age: 54 Year
  Sex: Male
  Weight: 132 kg

DRUGS (12)
  1. LIPITOR [Concomitant]
     Indication: BLOOD CHOLESTEROL INCREASED
     Route: 048
     Dates: start: 20030101
  2. LASIX                              /00032601/ [Concomitant]
     Indication: FLUID RETENTION
     Route: 048
     Dates: start: 20030101
  3. NORVASC                            /00972401/ [Concomitant]
     Indication: HYPERTENSION
     Route: 048
     Dates: start: 20030101
  4. LISINOPRIL [Concomitant]
     Indication: HYPERTENSION
     Route: 048
     Dates: start: 20030101
  5. PLAVIX                             /01220701/ [Concomitant]
     Indication: ANTICOAGULANT THERAPY
     Dates: start: 20030101
  6. ISOTRATE                           /00586302/ [Concomitant]
     Indication: CARDIAC DISORDER
     Dates: start: 20030101
  7. AMBIEN [Concomitant]
     Indication: INSOMNIA
     Route: 048
  8. HYDROCHLOROTHIAZIDE [Concomitant]
     Indication: CARDIAC DISORDER
     Route: 048
     Dates: start: 20030101
  9. COREG [Concomitant]
     Indication: HYPERTENSION
     Route: 048
     Dates: start: 20030101
  10. ASPIRIN [Concomitant]
     Indication: PROPHYLAXIS
     Route: 048
     Dates: start: 20030101
  11. OXYGEN [Concomitant]
     Indication: OBESITY
     Dosage: 3 LPM VIA NASAL CANNULA
     Route: 045
  12. NOVOLOG MIX 70/30 [Suspect]
     Indication: INSULIN-REQUIRING TYPE II DIABETES MELLITUS
     Dosage: SLIDING SCALE
     Route: 058
     Dates: start: 20050101

REACTIONS (2)
  - BLOOD GLUCOSE INCREASED [None]
  - CHEST PAIN [None]
